FAERS Safety Report 5447660-4 (Version None)
Quarter: 2007Q3

REPORT INFORMATION
  Report Type: 
  Country: None (occurrence: None)
  Receive Date: 20070906
  Receipt Date: 20070906
  Transmission Date: 20080115
  Serious: Yes (Hospitalization)
  Sender: FDA-Public Use
  Company Number: None

PATIENT
  Sex: Female
  Weight: 65.5 kg

DRUGS (2)
  1. GLEEVEC [Suspect]
     Indication: BREAST CANCER METASTATIC
     Dosage: 400 MG BID PO
     Route: 048
     Dates: start: 20070604, end: 20070823
  2. TAXOL [Suspect]
     Indication: BREAST CANCER METASTATIC
     Dosage: 100 MG/M2 2,3 OF 4 WK
     Dates: start: 20070606, end: 20070815

REACTIONS (2)
  - PLEURAL EFFUSION [None]
  - PNEUMONIA [None]
